FAERS Safety Report 8989262 (Version 1)
Quarter: 2012Q4

REPORT INFORMATION
  Report Type: Spontaneous
  Country: FR (occurrence: None)
  Receive Date: 20121219
  Receipt Date: 20121219
  Transmission Date: 20130627
  Serious: Yes (Hospitalization)
  Sender: FDA-Public Use
  Company Number: DSA_61459_2012

PATIENT
  Age: 69 Year
  Sex: Male

DRUGS (12)
  1. FLAGYL [Suspect]
     Indication: PRODUCT USED FOR UNKNOWN INDICATION
     Dosage: (1 DF TID Intravenous (not otherwise specified))
     Route: 042
     Dates: start: 20120605, end: 20120615
  2. LASILIX [Suspect]
     Indication: HYPERTENSION
     Dosage: (40 mg QD Oral)
     Route: 048
  3. PREVISCAN [Suspect]
     Indication: CARDIOVASCULAR EVENT PROPHYLAXIS
     Dosage: (DF)
  4. SERETIDE [Suspect]
     Indication: CHRONIC OBSTRUCTIVE PULMONARY DISEASE
     Dosage: Respiratory (inhalation)
     Route: 055
  5. COAPROVEL [Suspect]
     Indication: HYPERTENSION
     Dosage: (1 DF QD Oral)
     Route: 048
  6. DALACIN [Suspect]
     Indication: LUNG DISORDER
     Dosage: (600 mg QID Intravenous (not otherwise specified)
     Route: 042
     Dates: start: 20120612, end: 20120625
  7. CLAMOXYL [Suspect]
     Indication: PRODUCT USED FOR UNKNOWN INDICATION
     Dosage: (DF Intravenous (not otherwise specified))
     Route: 042
     Dates: start: 20120612, end: 2012
  8. INEXIUM [Suspect]
     Indication: PRODUCT USED FOR UNKNOWN INDICATION
     Dosage: (20 mg QD Oral)
     Route: 048
     Dates: start: 20120521, end: 20120620
  9. VANCOCINE [Suspect]
     Indication: PRODUCT USED FOR UNKNOWN INDICATION
     Dosage: (500 mg QID Intravenous (not otherwise specified))
     Route: 042
     Dates: start: 20120605, end: 20120615
  10. TAZOCILLINE [Suspect]
     Indication: PRODUCT USED FOR UNKNOWN INDICATION
     Dosage: (1 DF TID Intravenous (not otherwise specified))
     Route: 042
     Dates: start: 20120605, end: 20120615
  11. ROCEPHINE [Suspect]
     Indication: PRODUCT USED FOR UNKNOWN INDICATION
     Dosage: (DF; Twice daily Intravenous (not otherwise specified))
     Route: 042
     Dates: start: 20120528, end: 20120607
  12. DIFFU K [Concomitant]

REACTIONS (3)
  - Agranulocytosis [None]
  - Bacterial sepsis [None]
  - Bone marrow toxicity [None]
